FAERS Safety Report 24737317 (Version 1)
Quarter: 2024Q4

REPORT INFORMATION
  Report Type: Spontaneous
  Country: US (occurrence: US)
  Receive Date: 20241216
  Receipt Date: 20241216
  Transmission Date: 20250115
  Serious: No
  Sender: ALVOGEN
  Company Number: US-ALVOGEN-2024092953

PATIENT
  Sex: Female

DRUGS (3)
  1. FENTANYL [Suspect]
     Active Substance: FENTANYL
     Indication: Pain
     Dosage: FOR THE PAST YEAR SHE HAD BEEN USING COMPANY ?FENTANYL PATCHES
     Route: 062
     Dates: start: 2023
  2. FENTANYL [Suspect]
     Active Substance: FENTANYL
     Indication: Pain
     Dosage: LAST MONTH, TWO OF THE PATCHES DID NOT WORK FOR HER.?DIDN^T HAVE PRODUCT DETAILS OF PREVIOUS BOX
     Route: 062
  3. FENTANYL [Suspect]
     Active Substance: FENTANYL
     Indication: Pain
     Dosage: STRENGTH: 75 MCG/HR?EXPIRATION DATE: UU-JUN-2025?CURRENT BOX
     Route: 062

REACTIONS (7)
  - Chills [Unknown]
  - Nausea [Unknown]
  - Tremor [Unknown]
  - Anxiety [Unknown]
  - Drug effect less than expected [Unknown]
  - Device use issue [Unknown]
  - Device physical property issue [Unknown]

NARRATIVE: CASE EVENT DATE: 20231201
